FAERS Safety Report 16629366 (Version 2)
Quarter: 2019Q3

REPORT INFORMATION
  Report Type: Spontaneous
  Country: JP (occurrence: JP)
  Receive Date: 20190725
  Receipt Date: 20190729
  Transmission Date: 20191004
  Serious: Yes (Other)
  Sender: FDA-Public Use
  Company Number: JP-ROCHE-2361482

PATIENT
  Age: 60 Year
  Sex: Female

DRUGS (1)
  1. KADCYLA [Suspect]
     Active Substance: ADO-TRASTUZUMAB EMTANSINE
     Indication: BREAST CANCER
     Dosage: IN /APR/2018, RECEIVED MOST RECENT DOSE
     Route: 041
     Dates: start: 201409

REACTIONS (5)
  - Cerebral haemorrhage [Unknown]
  - Fall [Unknown]
  - Contusion [Unknown]
  - Central nervous system necrosis [Unknown]
  - Platelet count decreased [Unknown]
